FAERS Safety Report 8119200-2 (Version None)
Quarter: 2011Q4

REPORT INFORMATION
  Report Type: 
  Country: None (occurrence: None)
  Receive Date: 20111227
  Receipt Date: 20111031
  Transmission Date: 20120403
  Serious: No
  Sender: FDA-Public Use
  Company Number: PHEH2011US05075

PATIENT
  Sex: Female

DRUGS (4)
  1. FAMPRIDINE (FAMPRIDINE) [Concomitant]
  2. WELLBUTRIN [Concomitant]
  3. DITROPAN [Concomitant]
  4. GILENYA [Suspect]
     Indication: MULTIPLE SCLEROSIS
     Dosage: 0.5 MG, QD, ORAL
     Route: 048
     Dates: start: 20110101, end: 20111001

REACTIONS (4)
  - MULTIPLE SCLEROSIS [None]
  - HYPOKINESIA [None]
  - PARAESTHESIA [None]
  - BALANCE DISORDER [None]
